FAERS Safety Report 7888825-1 (Version None)
Quarter: 2011Q4

REPORT INFORMATION
  Report Type: 
  Country: None (occurrence: None)
  Receive Date: 20111031
  Receipt Date: 20111017
  Transmission Date: 20120403
  Serious: Yes (Life-Threatening)
  Sender: FDA-Public Use
  Company Number: US-1188576

PATIENT
  Sex: Female

DRUGS (1)
  1. CYCLOGYL [Suspect]
     Indication: MYDRIASIS
     Dosage: (OPHTHALMIC)
     Route: 047

REACTIONS (1)
  - CARDIAC FAILURE [None]
